FAERS Safety Report 4296304-6 (Version None)
Quarter: 2004Q1

REPORT INFORMATION
  Report Type: 
  Country: None (occurrence: None)
  Receive Date: 20040217
  Receipt Date: 20031014
  Transmission Date: 20041129
  Serious: No
  Sender: FDA-Public Use
  Company Number: US-GLAXOSMITHKLINE-A0430250A

PATIENT
  Age: 39 Year
  Sex: Female

DRUGS (3)
  1. LAMICTAL [Suspect]
     Indication: EPILEPSY
     Dosage: 25MG PER DAY
     Route: 048
     Dates: start: 20031009
  2. TEGRETOL [Concomitant]
  3. NEXIUM [Concomitant]

REACTIONS (2)
  - HERPES SIMPLEX [None]
  - VAGINAL PAIN [None]
